FAERS Safety Report 14731649 (Version 1)
Quarter: 2018Q2

REPORT INFORMATION
  Report Type: Spontaneous
  Country: PT (occurrence: PT)
  Receive Date: 20180407
  Receipt Date: 20180407
  Transmission Date: 20180711
  Serious: Yes (Other)
  Sender: FDA-Public Use
  Company Number: PT-ROCHE-2102770

PATIENT
  Age: 43 Year
  Sex: Female

DRUGS (1)
  1. METALYSE [Suspect]
     Active Substance: TENECTEPLASE
     Indication: PULMONARY EMBOLISM
     Route: 040

REACTIONS (5)
  - Peritoneal haemorrhage [Recovered/Resolved]
  - Neurological decompensation [Unknown]
  - Tachycardia [Unknown]
  - Traumatic liver injury [Recovered/Resolved]
  - Haemoglobin decreased [Unknown]
